FAERS Safety Report 4755935-7 (Version None)
Quarter: 2005Q3

REPORT INFORMATION
  Report Type: 
  Country: None (occurrence: None)
  Receive Date: 20050830
  Receipt Date: 20050818
  Transmission Date: 20060218
  Serious: Yes (Hospitalization, Other)
  Sender: FDA-Public Use
  Company Number: GB-JNJFOC-20050804316

PATIENT
  Sex: Female
  Weight: 87 kg

DRUGS (15)
  1. REMICADE [Suspect]
     Indication: RHEUMATOID ARTHRITIS
     Route: 042
  2. THYROXINE [Concomitant]
     Route: 065
  3. FUROSEMIDE [Concomitant]
     Route: 065
  4. ATENOLOL [Concomitant]
     Route: 065
  5. ASPIRIN [Concomitant]
     Route: 065
  6. IMDUR [Concomitant]
     Route: 065
  7. CO-PROXAMOL [Concomitant]
     Route: 065
  8. CO-PROXAMOL [Concomitant]
     Route: 065
  9. CIPROFIBRATE [Concomitant]
     Route: 065
  10. MONOMAX [Concomitant]
     Route: 065
  11. METHOTREXATE [Concomitant]
     Route: 065
  12. FOLIC ACID [Concomitant]
     Route: 065
  13. SYMBICORT [Concomitant]
     Route: 065
  14. SYMBICORT [Concomitant]
     Route: 065
  15. INHALER [Concomitant]
     Route: 065

REACTIONS (1)
  - DEEP VEIN THROMBOSIS [None]
